FAERS Safety Report 7467913-8 (Version None)
Quarter: 2011Q2

REPORT INFORMATION
  Report Type: 
  Country: None (occurrence: None)
  Receive Date: 20110509
  Receipt Date: 20110214
  Transmission Date: 20111010
  Serious: No
  Sender: FDA-Public Use
  Company Number: US-ALEXION-A201100185

PATIENT
  Sex: Female

DRUGS (4)
  1. WARFARIN [Concomitant]
     Dosage: UNK
     Route: 048
  2. SOLIRIS [Suspect]
     Indication: PAROXYSMAL NOCTURNAL HAEMOGLOBINURIA
     Dosage: UNK
     Route: 042
  3. SOLIRIS [Suspect]
     Dosage: 900 MG, Q2W
     Route: 042
  4. FOLIC ACID [Concomitant]
     Dosage: UNK
     Route: 048

REACTIONS (3)
  - HAEMOGLOBIN DECREASED [None]
  - NASOPHARYNGITIS [None]
  - EAR INFECTION [None]
